FAERS Safety Report 21354040 (Version 4)
Quarter: 2022Q4

REPORT INFORMATION
  Report Type: Spontaneous
  Country: CA (occurrence: CA)
  Receive Date: 20220920
  Receipt Date: 20221021
  Transmission Date: 20230113
  Serious: Yes (Other)
  Sender: FDA-Public Use
  Company Number: CA-ORGANON-O2209CAN000995

PATIENT
  Age: 13 Year
  Sex: Female
  Weight: 94.2 kg

DRUGS (1)
  1. NEXPLANON [Suspect]
     Active Substance: ETONOGESTREL
     Dosage: 1 IMPLANT OF 68 MILLIGRAM IN THE LEFT UPPER ARM (OVER THE TRICEPS MUSCLE- APPROXIMATELY 10 CM FROM T
     Route: 059
     Dates: start: 20220725, end: 20220902

REACTIONS (3)
  - Device expulsion [Recovered/Resolved]
  - Device placement issue [Recovered/Resolved]
  - No adverse event [Unknown]

NARRATIVE: CASE EVENT DATE: 20220725
